FAERS Safety Report 24333056 (Version 1)
Quarter: 2024Q3

REPORT INFORMATION
  Report Type: Spontaneous
  Country: US (occurrence: None)
  Receive Date: 20240917
  Receipt Date: 20240917
  Transmission Date: 20241016
  Serious: Yes (Hospitalization)
  Sender: Public
  Company Number: None

PATIENT
  Age: 73 Year
  Sex: Male

DRUGS (1)
  1. NUPLAZID [Suspect]
     Active Substance: PIMAVANSERIN TARTRATE
     Indication: Parkinson^s disease psychosis
     Dosage: FREQUENCY : DAILY;?
     Route: 048
     Dates: start: 20240722

REACTIONS (6)
  - COVID-19 [None]
  - Vitreous floaters [None]
  - Visual impairment [None]
  - Therapy interrupted [None]
  - Therapeutic response decreased [None]
  - Cerebrovascular accident [None]

NARRATIVE: CASE EVENT DATE: 20240911
